FAERS Safety Report 10334930 (Version 2)
Quarter: 2014Q3

REPORT INFORMATION
  Report Type: Spontaneous
  Country: US (occurrence: None)
  Receive Date: 20120817
  Receipt Date: 20140815
  Transmission Date: 20150326
  Serious: Yes (Other)
  Sender: FDA-Public Use
  Company Number: ADR-2007-3914

PATIENT
  Age: 77 Year
  Sex: Male

DRUGS (3)
  1. HYDROMORPHONE [Suspect]
     Active Substance: HYDROMORPHONE
  2. LIORESAL [Suspect]
     Active Substance: BACLOFEN
     Indication: MUSCLE SPASTICITY
     Route: 037
  3. CLONIDINE. [Suspect]
     Active Substance: CLONIDINE

REACTIONS (1)
  - Pain [None]

NARRATIVE: CASE EVENT DATE: 20061218
